FAERS Safety Report 6326446-2 (Version None)
Quarter: 2009Q3

REPORT INFORMATION
  Report Type: 
  Country: None (occurrence: None)
  Receive Date: 20090825
  Receipt Date: 20090817
  Transmission Date: 20100115
  Serious: Yes (Other)
  Sender: FDA-Public Use
  Company Number: US-ASTRAZENECA-2009UW16214

PATIENT
  Age: 64 Year
  Sex: Male
  Weight: 88.9 kg

DRUGS (5)
  1. SEROQUEL [Suspect]
     Indication: SCHIZOPHRENIA
     Dosage: 300 MG IN AM AND 600 MG IN PM
     Route: 048
     Dates: start: 20010801, end: 20070301
  2. GEODON [Concomitant]
     Dates: start: 20070101
  3. TRILAFON [Concomitant]
     Dates: start: 19890101
  4. PROZAC [Concomitant]
     Dates: start: 19840101
  5. TRIAVIL [Concomitant]
     Dates: start: 19890101

REACTIONS (3)
  - HEPATITIS C [None]
  - NEUROPATHY PERIPHERAL [None]
  - TYPE 2 DIABETES MELLITUS [None]
